FAERS Safety Report 4561299-4 (Version None)
Quarter: 2005Q1

REPORT INFORMATION
  Report Type: 
  Country: None (occurrence: None)
  Receive Date: 20050124
  Receipt Date: 20050110
  Transmission Date: 20050727
  Serious: Yes (Other)
  Sender: FDA-Public Use
  Company Number: 2004106960

PATIENT
  Age: 54 Year
  Sex: Female
  Weight: 52.1637 kg

DRUGS (8)
  1. CELEBREX [Suspect]
     Indication: OSTEOARTHRITIS
     Dosage: 200 MG (200 MG, 1 IN 1 D), ORAL
     Route: 048
     Dates: start: 20010323
  2. RISEDRONATE SODIUM (RISEDRONATE SODIUM) [Concomitant]
  3. FUROSEMIDE (FUROSEMIDE) [Concomitant]
  4. ATENOLOL [Concomitant]
  5. CALCIUM (CALCIUM) [Concomitant]
  6. ASPIRIN [Concomitant]
  7. LORAZEPAM [Concomitant]
  8. GEMFIBROZIL [Concomitant]

REACTIONS (9)
  - ARTHRALGIA [None]
  - BACK INJURY [None]
  - CARDIOMEGALY [None]
  - COMPLEX REGIONAL PAIN SYNDROME [None]
  - FOOT FRACTURE [None]
  - OEDEMA PERIPHERAL [None]
  - PAIN IN EXTREMITY [None]
  - REPETITIVE STRAIN INJURY [None]
  - TREATMENT NONCOMPLIANCE [None]
